FAERS Safety Report 5403874-0 (Version None)
Quarter: 2007Q3

REPORT INFORMATION
  Report Type: 
  Country: None (occurrence: None)
  Receive Date: 20070731
  Receipt Date: 20070731
  Transmission Date: 20080115
  Serious: Yes (Life-Threatening, Hospitalization)
  Sender: FDA-Public Use
  Company Number: None

PATIENT
  Age: 48 Year
  Sex: Female
  Weight: 99.7913 kg

DRUGS (1)
  1. AVANDIA [Suspect]

REACTIONS (1)
  - CARDIAC FAILURE CONGESTIVE [None]
